FAERS Safety Report 20472364 (Version 1)
Quarter: 2022Q1

REPORT INFORMATION
  Report Type: Spontaneous
  Country: US (occurrence: US)
  Receive Date: 20220215
  Receipt Date: 20220215
  Transmission Date: 20220424
  Serious: Yes (Other)
  Sender: FDA-Public Use
  Company Number: US-PFIZER INC-202200188600

PATIENT

DRUGS (1)
  1. METAXALONE [Suspect]
     Active Substance: METAXALONE
     Dosage: 800 MG, 3X/DAY

REACTIONS (3)
  - Systemic lupus erythematosus [Unknown]
  - Osteoarthritis [Unknown]
  - Fibromyalgia [Unknown]
